FAERS Safety Report 9169446 (Version 1)
Quarter: 2013Q1

REPORT INFORMATION
  Report Type: Spontaneous
  Country: GR (occurrence: GR)
  Receive Date: 20130318
  Receipt Date: 20130318
  Transmission Date: 20140127
  Serious: Yes (Death, Life-Threatening, Other)
  Sender: FDA-Public Use
  Company Number: GR-TEVA-391928ISR

PATIENT
  Sex: 0

DRUGS (9)
  1. DOXORUBICIN [Suspect]
     Indication: HEPATIC CANCER
     Dosage: 150 MG;PERFORMED WITH DC BEAD
  2. ZINACEF 750 MG [Concomitant]
     Indication: ANTIBIOTIC PROPHYLAXIS
     Route: 042
  3. METRONIDAZOLE 500 MG [Concomitant]
     Indication: ANTIBIOTIC PROPHYLAXIS
  4. SOLUCORTEF [Concomitant]
  5. DEXAMETHASON [Concomitant]
  6. ZANTAC [Concomitant]
     Dosage: 100 MG
     Route: 042
  7. ZOFRON [Concomitant]
     Indication: PROPHYLAXIS OF NAUSEA AND VOMITING
     Route: 042
  8. NONSTEROIDAL ANTI-INFLAMMATORY [Concomitant]
     Indication: PAIN
  9. OPIOIDS [Concomitant]
     Indication: PAIN

REACTIONS (14)
  - Sepsis [Fatal]
  - Liver abscess [Fatal]
  - Hepatic failure [Unknown]
  - Encephalopathy [Unknown]
  - Post procedural complication [Unknown]
  - Cholecystitis [Unknown]
  - Pleural effusion [Unknown]
  - Gastrointestinal haemorrhage [Unknown]
  - Pancreatitis [Unknown]
  - Hepatic function abnormal [Unknown]
  - Ascites [Unknown]
  - Oesophageal varices haemorrhage [Unknown]
  - Hepatic enzyme increased [Unknown]
  - Erythema [Unknown]
